FAERS Safety Report 4394954-X (Version None)
Quarter: 2004Q3

REPORT INFORMATION
  Report Type: 
  Country: None (occurrence: None)
  Receive Date: 20040712
  Receipt Date: 20040701
  Transmission Date: 20050211
  Serious: Yes (Life-Threatening, Hospitalization, Disabling)
  Sender: FDA-Public Use
  Company Number: CH-GLAXOSMITHKLINE-B0338422A

PATIENT
  Age: 20 Year
  Sex: Female

DRUGS (5)
  1. ZOFRAN [Suspect]
     Indication: NAUSEA
     Dosage: 16MG PER DAY
     Route: 042
     Dates: start: 20040524, end: 20040524
  2. ENDOXAN [Suspect]
     Indication: HODGKIN'S DISEASE
     Dosage: 4600MG PER DAY
     Route: 042
     Dates: start: 20040524, end: 20040524
  3. UROMITEXAN [Suspect]
     Indication: CYSTITIS
     Dosage: 4000MG PER DAY
     Route: 042
     Dates: start: 20040524, end: 20040524
  4. DEXAMETHASONE [Suspect]
     Indication: HODGKIN'S DISEASE
     Dosage: 15MG PER DAY
     Route: 048
     Dates: start: 20040524, end: 20040524
  5. MOTILIUM [Suspect]
     Indication: NAUSEA
     Dosage: 80MG PER DAY
     Route: 048
     Dates: start: 20040524, end: 20040524

REACTIONS (12)
  - AUTOMATISM [None]
  - BLOOD SODIUM DECREASED [None]
  - DEPRESSED LEVEL OF CONSCIOUSNESS [None]
  - DIZZINESS [None]
  - INAPPROPRIATE ANTIDIURETIC HORMONE SECRETION [None]
  - MENINGITIS [None]
  - NAUSEA [None]
  - POLYURIA [None]
  - SOMNOLENCE [None]
  - STATUS EPILEPTICUS [None]
  - URINE SODIUM DECREASED [None]
  - VOMITING [None]
